FAERS Safety Report 11591009 (Version 1)
Quarter: 2015Q4

REPORT INFORMATION
  Report Type: Spontaneous
  Country: KR (occurrence: KR)
  Receive Date: 20151003
  Receipt Date: 20151003
  Transmission Date: 20160304
  Serious: Yes (Hospitalization)
  Sender: FDA-Public Use
  Company Number: KR-AMGEN-KORCT2015102975

PATIENT
  Age: 65 Year
  Sex: Female
  Weight: 69.1 kg

DRUGS (16)
  1. G-LASTA [Suspect]
     Active Substance: PEGFILGRASTIM
     Dosage: 6 MG, 1X/3WEEKS
     Route: 058
     Dates: start: 20150802, end: 20150802
  2. DOCETAXEL. [Concomitant]
     Active Substance: DOCETAXEL
     Dosage: 110 MG, UNK
     Route: 042
     Dates: start: 20150912, end: 20150912
  3. DOXORUBICIN [Concomitant]
     Active Substance: DOXORUBICIN
     Dosage: 73 MG, UNK
     Route: 042
     Dates: start: 20150912, end: 20150912
  4. CYCLOPHOSPHAMIDE. [Concomitant]
     Active Substance: CYCLOPHOSPHAMIDE
     Dosage: 730 MG, UNK
     Route: 042
     Dates: start: 20150822, end: 20150822
  5. CYCLOPHOSPHAMIDE. [Concomitant]
     Active Substance: CYCLOPHOSPHAMIDE
     Dosage: 730 MG, UNK
     Route: 042
     Dates: start: 20150912, end: 20150912
  6. G-LASTA [Suspect]
     Active Substance: PEGFILGRASTIM
     Dosage: 6 MG, 1X/3WEEKS
     Route: 058
     Dates: start: 20150913, end: 20150913
  7. CYCLOPHOSPHAMIDE. [Concomitant]
     Active Substance: CYCLOPHOSPHAMIDE
     Dosage: 730 MG, UNK
     Route: 042
     Dates: start: 20150711, end: 20150711
  8. DOCETAXEL. [Concomitant]
     Active Substance: DOCETAXEL
     Dosage: 110 MG, UNK
     Route: 042
     Dates: start: 20150801, end: 20150801
  9. CYCLOPHOSPHAMIDE. [Concomitant]
     Active Substance: CYCLOPHOSPHAMIDE
     Dosage: 730 MG, UNK
     Route: 042
     Dates: start: 20150801, end: 20150801
  10. DOCETAXEL. [Concomitant]
     Active Substance: DOCETAXEL
     Dosage: 110 MG, UNK
     Route: 042
     Dates: start: 20150822, end: 20150822
  11. DOXORUBICIN [Concomitant]
     Active Substance: DOXORUBICIN
     Dosage: 73 MG, UNK
     Route: 042
     Dates: start: 20150801, end: 20150801
  12. DOXORUBICIN [Concomitant]
     Active Substance: DOXORUBICIN
     Dosage: 73 MG, UNK
     Route: 042
     Dates: start: 20150822, end: 20150822
  13. G-LASTA [Suspect]
     Active Substance: PEGFILGRASTIM
     Indication: FEBRILE NEUTROPENIA
     Dosage: 6 MG, 1X/3WEEKS
     Route: 058
     Dates: start: 20150712, end: 20150712
  14. G-LASTA [Suspect]
     Active Substance: PEGFILGRASTIM
     Dosage: 6 MG, 1X/3WEEKS
     Route: 058
     Dates: start: 20150823, end: 20150823
  15. DOCETAXEL. [Concomitant]
     Active Substance: DOCETAXEL
     Dosage: 110 MG, UNK
     Route: 042
     Dates: start: 20150711, end: 20150711
  16. DOXORUBICIN [Concomitant]
     Active Substance: DOXORUBICIN
     Dosage: 73 MG, UNK
     Route: 042
     Dates: start: 20150711, end: 20150711

REACTIONS (1)
  - Neutropenia [Recovered/Resolved]

NARRATIVE: CASE EVENT DATE: 20150918
